FAERS Safety Report 5032278-8 (Version None)
Quarter: 2006Q2

REPORT INFORMATION
  Report Type: 
  Country: None (occurrence: None)
  Receive Date: 20060619
  Receipt Date: 20060605
  Transmission Date: 20061013
  Serious: Yes (Death)
  Sender: FDA-Public Use
  Company Number: US017720

PATIENT
  Sex: Male

DRUGS (4)
  1. ACTIQ [Suspect]
     Indication: CAUDA EQUINA SYNDROME
     Dates: start: 20050901, end: 20060531
  2. VICODIN [Concomitant]
  3. SKELAXIN [Concomitant]
  4. LIDODERM [Concomitant]

REACTIONS (1)
  - DEATH [None]
